FAERS Safety Report 16903648 (Version 1)
Quarter: 2019Q4

REPORT INFORMATION
  Report Type: Spontaneous
  Country: GB (occurrence: GB)
  Receive Date: 20191009
  Receipt Date: 20191009
  Transmission Date: 20200122
  Serious: Yes (Other)
  Sender: FDA-Public Use
  Company Number: None

PATIENT
  Age: 71 Year
  Sex: Female
  Weight: 60 kg

DRUGS (3)
  1. AMITRIPTYLINE 10 MG [Concomitant]
     Active Substance: AMITRIPTYLINE
  2. PANKREOFLAT (DIMETHICONE\PANCREATIN) [Suspect]
     Active Substance: DIMETHICONE\PANCRELIPASE
     Indication: GASTRIC DISORDER
     Dosage: ?          QUANTITY:2 TABLET(S);?
     Route: 048
     Dates: start: 20191008, end: 20191009
  3. CALCICHEW - D3 FORTE [Concomitant]

REACTIONS (5)
  - Bradycardia [None]
  - Heart rate irregular [None]
  - Chills [None]
  - Influenza like illness [None]
  - Rash [None]

NARRATIVE: CASE EVENT DATE: 20191008
